FAERS Safety Report 8516657-X (Version None)
Quarter: 2012Q3

REPORT INFORMATION
  Report Type: 
  Country: None (occurrence: None)
  Receive Date: 20120718
  Receipt Date: 20120710
  Transmission Date: 20120928
  Serious: Yes (Other)
  Sender: FDA-Public Use
  Company Number: BR-JNJFOC-20111212251

PATIENT
  Sex: Male
  Weight: 76 kg

DRUGS (4)
  1. TYLENOL (CAPLET) [Suspect]
     Route: 048
  2. TPN [Suspect]
     Indication: PRODUCT USED FOR UNKNOWN INDICATION
     Route: 048
     Dates: end: 20111226
  3. TYLENOL (CAPLET) [Suspect]
     Indication: HEADACHE
     Route: 048
     Dates: start: 20111226, end: 20111226
  4. TPN [Suspect]
     Route: 048

REACTIONS (2)
  - PRIAPISM [None]
  - TENSION [None]
